FAERS Safety Report 8267738-X (Version None)
Quarter: 2012Q2

REPORT INFORMATION
  Report Type: 
  Country: None (occurrence: None)
  Receive Date: 20120409
  Receipt Date: 20120326
  Transmission Date: 20120825
  Serious: Yes (Other)
  Sender: FDA-Public Use
  Company Number: NZ-RANBAXY-2012R1-55281

PATIENT
  Age: 40 Year

DRUGS (1)
  1. CIPROFLOXACIN HYDROCHLORIDE [Suspect]
     Indication: MENINGITIS
     Dosage: UNK
     Route: 065

REACTIONS (3)
  - DISORIENTATION [None]
  - HALLUCINATION, VISUAL [None]
  - MYOCLONUS [None]
